FAERS Safety Report 13422918 (Version 4)
Quarter: 2017Q2

REPORT INFORMATION
  Report Type: Spontaneous
  Country: US (occurrence: US)
  Receive Date: 20170410
  Receipt Date: 20170626
  Transmission Date: 20170830
  Serious: No
  Sender: FDA-Public Use
  Company Number: US-VIFOR (INTERNATIONAL) INC.-VIT-2017-03325

PATIENT
  Age: 51 Year
  Sex: Male
  Weight: 81 kg

DRUGS (7)
  1. COREG [Concomitant]
     Active Substance: CARVEDILOL
  2. VENOFER [Suspect]
     Active Substance: IRON SUCROSE
     Indication: IRON DEFICIENCY
     Route: 040
     Dates: start: 20160330
  3. MINOXIDIL. [Concomitant]
     Active Substance: MINOXIDIL
  4. MIRCERA [Suspect]
     Active Substance: METHOXY POLYETHYLENE GLYCOL-EPOETIN BETA
     Indication: ANAEMIA
     Dosage: 200 MG, 150 MG (2X75 MG) AND 100 MG
     Route: 058
     Dates: start: 201603, end: 201703
  5. VENOFER [Suspect]
     Active Substance: IRON SUCROSE
     Dates: start: 2012
  6. FOSINOPRIL [Concomitant]
     Active Substance: FOSINOPRIL
  7. RENVELA [Concomitant]
     Active Substance: SEVELAMER CARBONATE
     Dates: start: 20161117

REACTIONS (5)
  - Rash erythematous [Not Recovered/Not Resolved]
  - Rash generalised [Not Recovered/Not Resolved]
  - Pruritus generalised [Not Recovered/Not Resolved]
  - Rash pruritic [Not Recovered/Not Resolved]
  - Pyrexia [Not Recovered/Not Resolved]

NARRATIVE: CASE EVENT DATE: 20170201
